FAERS Safety Report 19541868 (Version 1)
Quarter: 2021Q3

REPORT INFORMATION
  Report Type: Spontaneous
  Country: FR (occurrence: FR)
  Receive Date: 20210714
  Receipt Date: 20210714
  Transmission Date: 20211014
  Serious: Yes (Hospitalization)
  Sender: FDA-Public Use
  Company Number: FR-TEVA-2021-FR-1931749

PATIENT
  Age: 26 Year
  Sex: Female
  Weight: 74 kg

DRUGS (7)
  1. DULOXETINE BASE [Suspect]
     Active Substance: DULOXETINE
     Indication: PRODUCT USED FOR UNKNOWN INDICATION
     Dosage: 60 MG IN THE MORNING AND 30 MG IN THE EVENING, 90MG
     Route: 048
     Dates: start: 202012, end: 20210430
  2. THERALENE 5 MG, COMPRIME PELLICULE SECABLE [Suspect]
     Active Substance: TRIMEPRAZINE
     Indication: PRODUCT USED FOR UNKNOWN INDICATION
     Dosage: 20 TABLETS OF 5MG, 20DF
     Route: 048
     Dates: start: 20210424, end: 20210424
  3. LYRICA [Suspect]
     Active Substance: PREGABALIN
     Indication: PRODUCT USED FOR UNKNOWN INDICATION
     Dosage: 4DF
     Route: 048
     Dates: start: 20210424, end: 20210424
  4. PRAZEPAM [Suspect]
     Active Substance: PRAZEPAM
     Indication: PRODUCT USED FOR UNKNOWN INDICATION
     Dosage: 5 TABLETS OF 10MG, 50MG
     Route: 048
     Dates: start: 20210424, end: 20210424
  5. LANSOPRAZOLE. [Suspect]
     Active Substance: LANSOPRAZOLE
     Indication: PRODUCT USED FOR UNKNOWN INDICATION
     Dosage: 15MG
     Route: 048
     Dates: start: 20210421, end: 20210430
  6. ACUPAN [Suspect]
     Active Substance: NEFOPAM HYDROCHLORIDE
     Indication: PAIN
     Dosage: 120MG
     Route: 041
     Dates: start: 20210421
  7. SERESTA 10 MG, COMPRIME [Suspect]
     Active Substance: OXAZEPAM
     Indication: PRODUCT USED FOR UNKNOWN INDICATION
     Dosage: 10MG
     Route: 048
     Dates: start: 20210421, end: 20210430

REACTIONS (3)
  - Hypotension [Recovered/Resolved]
  - Somnolence [Recovered/Resolved]
  - Suicide attempt [Recovered/Resolved]

NARRATIVE: CASE EVENT DATE: 20210424
